FAERS Safety Report 23255541 (Version 2)
Quarter: 2023Q4

REPORT INFORMATION
  Report Type: Spontaneous
  Country: CA (occurrence: CA)
  Receive Date: 20231203
  Receipt Date: 20231227
  Transmission Date: 20240110
  Serious: Yes (Other)
  Sender: FDA-Public Use
  Company Number: CA-PFIZER INC-202300215166

PATIENT
  Age: 32 Year
  Sex: Female

DRUGS (20)
  1. RUXIENCE [Suspect]
     Active Substance: RITUXIMAB-PVVR
     Indication: Rheumatoid arthritis
     Dosage: 500 MG, DAY 1 AND DAY 15
     Route: 042
     Dates: start: 20230626, end: 20230710
  2. RUXIENCE [Suspect]
     Active Substance: RITUXIMAB-PVVR
     Dosage: 500 MG
     Route: 042
     Dates: start: 20230710
  3. ACETAMINOPHEN [Concomitant]
     Active Substance: ACETAMINOPHEN
     Indication: Premedication
     Dosage: UNK
     Dates: start: 20230710, end: 20230710
  4. APREPITANT [Concomitant]
     Active Substance: APREPITANT
     Dosage: UNK
  5. CALCIUM CARBONATE [Concomitant]
     Active Substance: CALCIUM CARBONATE
     Dosage: UNK
  6. DOMPERIDONE [Concomitant]
     Active Substance: DOMPERIDONE
     Dosage: UNK
  7. DIPHENHYDRAMINE [Concomitant]
     Active Substance: DIPHENHYDRAMINE
     Indication: Premedication
     Dosage: UNK
     Dates: start: 20230710, end: 20230710
  8. EPREX [Concomitant]
     Active Substance: ERYTHROPOIETIN
     Dosage: UNK
  9. FOLIC ACID [Concomitant]
     Active Substance: FOLIC ACID
     Dosage: UNK
  10. FUROSEMIDE [Concomitant]
     Active Substance: FUROSEMIDE
     Dosage: UNK
  11. MAGNESIUM [Concomitant]
     Active Substance: MAGNESIUM
     Dosage: UNK
  12. MYCOPHENOLIC ACID [Concomitant]
     Active Substance: MYCOPHENOLIC ACID
     Dosage: UNK
  13. PANTOPRAZOLE [Concomitant]
     Active Substance: PANTOPRAZOLE
     Dosage: UNK
  14. PREDNISONE [Concomitant]
     Active Substance: PREDNISONE
     Indication: Premedication
     Dosage: 50 MG THE NIGHT BEFORE AND 50 MG THE DAY OF INFUSION
  15. PREDNISONE [Concomitant]
     Active Substance: PREDNISONE
     Dosage: 50MG HS THE NIGHT PRIOR AND 50 MG THE AM OF INFUSION
  16. RAMIPRIL [Concomitant]
     Active Substance: RAMIPRIL
     Dosage: UNK
  17. SEPTRA [Concomitant]
     Active Substance: SULFAMETHOXAZOLE\TRIMETHOPRIM
     Dosage: UNK
  18. SULFAMETHOXAZOLE [Concomitant]
     Active Substance: SULFAMETHOXAZOLE
     Dosage: UNK
  19. VITAMIN B12 [Concomitant]
     Active Substance: CYANOCOBALAMIN
     Dosage: UNK
  20. CHOLECALCIFEROL [Concomitant]
     Active Substance: CHOLECALCIFEROL
     Dosage: UNK

REACTIONS (8)
  - Poor venous access [Unknown]
  - Infusion site pain [Recovered/Resolved]
  - Nausea [Unknown]
  - Off label use [Unknown]
  - Off label use [Unknown]
  - Intentional product use issue [Unknown]
  - Off label use [Unknown]
  - Product use issue [Unknown]

NARRATIVE: CASE EVENT DATE: 20230101
